FAERS Safety Report 9765247 (Version 1)
Quarter: 2013Q4

REPORT INFORMATION
  Report Type: Spontaneous
  Country: US (occurrence: US)
  Receive Date: 20131217
  Receipt Date: 20131217
  Transmission Date: 20140711
  Serious: Yes (Life-Threatening)
  Sender: FDA-Public Use
  Company Number: US-GLAXOSMITHKLINE-A1004059A

PATIENT
  Age: 68 Year
  Sex: Male

DRUGS (7)
  1. VOTRIENT [Suspect]
     Indication: NEOPLASM MALIGNANT
     Dosage: 4TAB PER DAY
     Route: 048
     Dates: start: 20120816, end: 201211
  2. FENTANYL [Concomitant]
  3. HYDROMORPHONE [Concomitant]
  4. CEPHALEXIN [Concomitant]
  5. GABAPENTIN [Concomitant]
  6. FAMOTIDINE [Concomitant]
  7. POTASSIUM CHLORIDE [Concomitant]

REACTIONS (1)
  - Drug ineffective [Unknown]
